FAERS Safety Report 9014797 (Version 1)
Quarter: 2013Q1

REPORT INFORMATION
  Report Type: Spontaneous
  Country: US (occurrence: US)
  Receive Date: 20130115
  Receipt Date: 20130115
  Transmission Date: 20140127
  Serious: Yes (Hospitalization)
  Sender: FDA-Public Use
  Company Number: US-MERCK-1301USA003699

PATIENT
  Age: 5 Year
  Sex: Male

DRUGS (2)
  1. SINGULAIR [Suspect]
     Indication: COUGH
     Dosage: 1 TABLET AT NIGHT
     Route: 048
  2. SINGULAIR [Suspect]
     Indication: MULTIPLE ALLERGIES

REACTIONS (8)
  - Tourette^s disorder [Unknown]
  - Tic [Unknown]
  - Rash [Unknown]
  - Onychophagia [Unknown]
  - Muscle twitching [Unknown]
  - Movement disorder [Unknown]
  - Excessive eye blinking [Unknown]
  - Abnormal dreams [Unknown]
